FAERS Safety Report 6155259-X (Version None)
Quarter: 2009Q2

REPORT INFORMATION
  Report Type: 
  Country: None (occurrence: None)
  Receive Date: 20090410
  Receipt Date: 20090410
  Transmission Date: 20091009
  Serious: Yes (Other)
  Sender: FDA-Public Use
  Company Number: None

PATIENT
  Age: 67 Year
  Sex: Female
  Weight: 52.1637 kg

DRUGS (1)
  1. ACTONEL [Suspect]
     Indication: BONE DISORDER
     Dates: start: 20081215, end: 20090119

REACTIONS (7)
  - ABDOMINAL DISCOMFORT [None]
  - BACK PAIN [None]
  - BLOOD PRESSURE INCREASED [None]
  - DIARRHOEA [None]
  - MUSCULAR WEAKNESS [None]
  - PHOTOPSIA [None]
  - VISUAL IMPAIRMENT [None]
